FAERS Safety Report 15353154 (Version 2)
Quarter: 2018Q4

REPORT INFORMATION
  Report Type: Spontaneous
  Country: US (occurrence: US)
  Receive Date: 20180905
  Receipt Date: 20181005
  Transmission Date: 20190204
  Serious: Yes (Hospitalization, Other)
  Sender: FDA-Public Use
  Company Number: US-ELI_LILLY_AND_COMPANY-US201808014684

PATIENT
  Sex: Male

DRUGS (1)
  1. HUMALOG [Suspect]
     Active Substance: INSULIN LISPRO
     Indication: PRODUCT USED FOR UNKNOWN INDICATION
     Dosage: 18 U, PRN (PER MEAL)
     Route: 058

REACTIONS (6)
  - Compartment syndrome [Unknown]
  - Infectious thyroiditis [Unknown]
  - Fall [Unknown]
  - Artery dissection [Unknown]
  - General physical health deterioration [Unknown]
  - Thyroid cancer [Unknown]
